FAERS Safety Report 8426736-3 (Version None)
Quarter: 2012Q2

REPORT INFORMATION
  Report Type: 
  Country: None (occurrence: None)
  Receive Date: 20120531
  Receipt Date: 20120517
  Transmission Date: 20120825
  Serious: Yes (Other)
  Sender: FDA-Public Use
  Company Number: WAES 1110USA01963

PATIENT
  Age: 88 Year
  Sex: Male
  Weight: 83.9154 kg

DRUGS (15)
  1. ZYMAR [Concomitant]
  2. PLACEBO [Suspect]
     Indication: ACUTE CORONARY SYNDROME
     Dosage: /PO
     Route: 048
     Dates: start: 20070226
  3. ASPIRIN [Concomitant]
  4. XIBROM [Concomitant]
  5. CLOPIDOGREL [Concomitant]
  6. VYTORIN [Suspect]
     Indication: ACUTE CORONARY SYNDROME
     Dosage: 10-40 MG/DAILY/PO /PO
     Route: 048
     Dates: start: 20070226
  7. PLACEBO [Suspect]
     Indication: ACUTE CORONARY SYNDROME
     Dosage: /PO
     Route: 048
     Dates: start: 20070226
  8. PROAIR (ALBUTEROL SULFATE) [Concomitant]
  9. ADVAIR DISKUS 100/50 [Concomitant]
  10. ALPRAZOLAM [Concomitant]
  11. NITROGLYCERIN [Concomitant]
  12. PAXIL [Concomitant]
  13. PRED FORTE [Concomitant]
  14. CARVEDILOL [Concomitant]
  15. ISOSORBIDE DINITRATE [Concomitant]

REACTIONS (2)
  - SKIN LESION [None]
  - MALIGNANT MELANOMA IN SITU [None]
